FAERS Safety Report 9254863 (Version 1)
Quarter: 2013Q1

REPORT INFORMATION
  Report Type: Spontaneous
  Country: US (occurrence: None)
  Receive Date: 20121212
  Receipt Date: 20121212
  Transmission Date: 20140127
  Serious: Yes (Other)
  Sender: FDA-Public Use
  Company Number: 2012-000062

PATIENT
  Sex: Female

DRUGS (1)
  1. FEMHRT [Suspect]
     Dosage: 2.5/500 UG TABLETS
     Dates: start: 2005

REACTIONS (1)
  - Breast cancer [None]
